FAERS Safety Report 5347033-9 (Version None)
Quarter: 2007Q2

REPORT INFORMATION
  Report Type: 
  Country: None (occurrence: None)
  Receive Date: 20070604
  Receipt Date: 20070521
  Transmission Date: 20071010
  Serious: Yes (Disabling)
  Sender: FDA-Public Use
  Company Number: 156674ISR

PATIENT
  Age: 69 Year
  Sex: Female

DRUGS (10)
  1. FLUOROURACIL [Suspect]
     Dosage: SEE IMAGE
     Route: 040
     Dates: start: 20060913, end: 20070221
  2. FLUOROURACIL [Suspect]
     Dosage: SEE IMAGE
     Route: 040
     Dates: start: 20060913, end: 20070221
  3. FOLINIC ACID [Suspect]
     Dosage: 560 MG (CYCLICAL) INTRAVENOUS (NOT OTHERWISE SPECIFIED)
     Route: 042
     Dates: start: 20060913, end: 20070221
  4. OXALIPLATIN [Suspect]
     Dosage: 119 MG (CYCLICAL) INTRAVENOUS
     Route: 042
     Dates: start: 20060913, end: 20070124
  5. SINEMET [Concomitant]
  6. IRINOTECAN HCL [Concomitant]
  7. PIRIBEDIL [Concomitant]
  8. IMIPRAMINE HYDROCHLORIDE [Concomitant]
  9. VASOBRAL [Concomitant]
  10. TOCOPHERYL ACETATE [Concomitant]

REACTIONS (1)
  - NEUROPATHY PERIPHERAL [None]
